FAERS Safety Report 25022299 (Version 4)
Quarter: 2025Q2

REPORT INFORMATION
  Report Type: Report from Study
  Country: US (occurrence: US)
  Receive Date: 20250228
  Receipt Date: 20250416
  Transmission Date: 20250716
  Serious: Yes (Other)
  Sender: TAKEDA
  Company Number: US-TAKEDA-2024TUS116980

PATIENT
  Sex: Female
  Weight: 61 kg

DRUGS (12)
  1. TEDUGLUTIDE [Suspect]
     Active Substance: TEDUGLUTIDE
     Indication: Short-bowel syndrome
     Dosage: UNK UNK, QD
     Dates: end: 202407
  2. TEDUGLUTIDE [Suspect]
     Active Substance: TEDUGLUTIDE
     Dosage: 0.15 MILLILITER, QD
     Dates: start: 202408
  3. TEDUGLUTIDE [Suspect]
     Active Substance: TEDUGLUTIDE
     Dosage: UNK UNK, QD
  4. TEDUGLUTIDE [Suspect]
     Active Substance: TEDUGLUTIDE
  5. ALPRAZOLAM [Concomitant]
     Active Substance: ALPRAZOLAM
  6. FUROSEMIDE [Concomitant]
     Active Substance: FUROSEMIDE
     Dosage: 20 MILLIGRAM, QD
  7. LEVOTHYROXINE [Concomitant]
     Active Substance: LEVOTHYROXINE
     Dosage: 20 MILLIGRAM, QD
  8. LEVOTHYROXINE [Concomitant]
     Active Substance: LEVOTHYROXINE
     Dosage: 25 MILLIGRAM, QD
  9. PANTOPRAZOLE [Concomitant]
     Active Substance: PANTOPRAZOLE
     Dosage: 40 MILLIGRAM, BID
  10. PAROXETINE [Concomitant]
     Active Substance: PAROXETINE
     Dosage: 30 MILLIGRAM, QD
  11. ACEBUTOLOL [Concomitant]
     Active Substance: ACEBUTOLOL
     Dosage: 200 MILLIGRAM, QD
  12. VELTASSA [Concomitant]
     Active Substance: PATIROMER
     Dosage: 8.4 MILLIGRAM, BID

REACTIONS (8)
  - Haematochezia [Unknown]
  - Product distribution issue [Unknown]
  - Diarrhoea [Unknown]
  - Haemorrhoids [Unknown]
  - Product use issue [Unknown]
  - Anaemia [Unknown]
  - Muscle spasms [Unknown]
  - Pruritus [Unknown]
